FAERS Safety Report 24854016 (Version 1)
Quarter: 2025Q1

REPORT INFORMATION
  Report Type: Spontaneous
  Country: US (occurrence: US)
  Receive Date: 20250117
  Receipt Date: 20250117
  Transmission Date: 20250408
  Serious: Yes (Hospitalization)
  Sender: Steriscience PTE
  Company Number: US-STERISCIENCE B.V.-2024-ST-001009

PATIENT
  Age: 52 Day

DRUGS (11)
  1. MIDAZOLAM [Suspect]
     Active Substance: MIDAZOLAM
     Indication: Status epilepticus
     Dosage: CONTINUOUS INFUSION AT 0.1 MG/KG/HR
     Route: 042
  2. MIDAZOLAM [Suspect]
     Active Substance: MIDAZOLAM
     Dosage: TITRATED TO 0.5 MG/KG/HR OVER 12 HOURS
     Route: 042
  3. MIDAZOLAM [Suspect]
     Active Substance: MIDAZOLAM
     Route: 042
  4. LORAZEPAM [Concomitant]
     Active Substance: LORAZEPAM
     Indication: Status epilepticus
     Route: 042
  5. PHENOBARBITAL [Concomitant]
     Active Substance: PHENOBARBITAL
     Indication: Status epilepticus
     Route: 042
  6. PHENOBARBITAL [Concomitant]
     Active Substance: PHENOBARBITAL
     Route: 042
  7. FOSPHENYTOIN [Concomitant]
     Active Substance: FOSPHENYTOIN
     Indication: Status epilepticus
     Route: 042
  8. FOSPHENYTOIN [Concomitant]
     Active Substance: FOSPHENYTOIN
     Route: 042
  9. LEVETIRACETAM [Concomitant]
     Active Substance: LEVETIRACETAM
     Indication: Status epilepticus
     Route: 042
  10. KETAMINE [Concomitant]
     Active Substance: KETAMINE
     Indication: Status epilepticus
     Route: 042
  11. KETAMINE [Concomitant]
     Active Substance: KETAMINE
     Dosage: CONTINUOUS INFUSION AT 1 MG/KG/HR ON HOSPITAL DAY 52

REACTIONS (3)
  - Hypotension [Recovering/Resolving]
  - Treatment failure [Unknown]
  - Off label use [Unknown]
